FAERS Safety Report 13574981 (Version 4)
Quarter: 2017Q3

REPORT INFORMATION
  Report Type: Report from Study
  Country: US (occurrence: US)
  Receive Date: 20170523
  Receipt Date: 20170711
  Transmission Date: 20171127
  Serious: Yes (Other)
  Sender: FDA-Public Use
  Company Number: US-TEVA-771540USA

PATIENT
  Age: 57 Year
  Sex: Female

DRUGS (2)
  1. AUSTEDO [Suspect]
     Active Substance: DEUTETRABENAZINE
     Indication: HUNTINGTON^S DISEASE
     Dosage: 48 MILLIGRAM DAILY;
     Route: 065
     Dates: start: 201704, end: 20170601
  2. XENAZINE [Concomitant]
     Active Substance: TETRABENAZINE
     Dosage: 36 MILLIGRAM DAILY;
     Route: 065
     Dates: start: 20170525

REACTIONS (8)
  - Nausea [Recovered/Resolved]
  - Vomiting [Recovered/Resolved]
  - Arthralgia [Unknown]
  - Decreased appetite [Not Recovered/Not Resolved]
  - Irritability [Unknown]
  - Abnormal loss of weight [Not Recovered/Not Resolved]
  - Pain [Unknown]
  - Myalgia [Unknown]

NARRATIVE: CASE EVENT DATE: 201704
